FAERS Safety Report 5080404-7 (Version None)
Quarter: 2006Q3

REPORT INFORMATION
  Report Type: 
  Country: None (occurrence: None)
  Receive Date: 20060814
  Receipt Date: 20060814
  Transmission Date: 20061208
  Serious: Yes (Other)
  Sender: FDA-Public Use
  Company Number: None

PATIENT
  Sex: Male
  Weight: 76.2043 kg

DRUGS (2)
  1. ENBREL [Suspect]
     Indication: ANKYLOSING SPONDYLITIS
     Dosage: 50 MG QW SQ
     Route: 058
  2. ENBREL [Suspect]
     Indication: SACROILIITIS
     Dosage: 50 MG QW SQ
     Route: 058

REACTIONS (1)
  - MULTIPLE SCLEROSIS [None]
